FAERS Safety Report 25490777 (Version 7)
Quarter: 2025Q4

REPORT INFORMATION
  Report Type: Report from Study
  Country: BR (occurrence: BR)
  Receive Date: 20250627
  Receipt Date: 20251125
  Transmission Date: 20260117
  Serious: Yes (Other)
  Sender: JOHNSON AND JOHNSON
  Company Number: BR-JNJFOC-20250623062

PATIENT
  Age: 41 Year
  Sex: Female

DRUGS (6)
  1. RYBREVANT [Suspect]
     Active Substance: AMIVANTAMAB-VMJW
     Indication: Non-small cell lung cancer
     Route: 041
  2. RYBREVANT [Suspect]
     Active Substance: AMIVANTAMAB-VMJW
     Dosage: LAST DOSE ADMINISTERED ON 2-SEP-2025
     Route: 041
     Dates: start: 202412
  3. RYBREVANT [Suspect]
     Active Substance: AMIVANTAMAB-VMJW
     Dosage: LAST DOSE ADMINISTERED ON 24-JUN-2025, LAST DOSE ADMINISTERED ON 14-JUL-2025
     Route: 041
     Dates: start: 20241016
  4. RYBREVANT [Suspect]
     Active Substance: AMIVANTAMAB-VMJW
     Dosage: LAST DOSE ADMINISTERED ON 04-NOV-2025, NEXT APPLICATION ON 25-NOV-2025
     Route: 041
  5. PEMETREXED [Suspect]
     Active Substance: PEMETREXED
     Indication: Product used for unknown indication
     Dates: start: 202412
  6. CARBOPLATIN [Suspect]
     Active Substance: CARBOPLATIN
     Indication: Product used for unknown indication
     Dates: start: 202412, end: 202412

REACTIONS (23)
  - Anaphylactic shock [Recovered/Resolved]
  - Infusion related reaction [Recovered/Resolved]
  - Metastases to bone [Unknown]
  - Paronychia [Not Recovered/Not Resolved]
  - Nail bed inflammation [Recovering/Resolving]
  - Nail injury [Not Recovered/Not Resolved]
  - Dermatitis [Recovering/Resolving]
  - Muscular weakness [Not Recovered/Not Resolved]
  - Myalgia [Recovering/Resolving]
  - Hair growth abnormal [Not Recovered/Not Resolved]
  - Growth of eyelashes [Unknown]
  - Anal fissure [Not Recovered/Not Resolved]
  - Limb injury [Unknown]
  - Toxicity to various agents [Unknown]
  - Contusion [Unknown]
  - Rash [Recovering/Resolving]
  - Abnormal faeces [Unknown]
  - Impaired healing [Unknown]
  - Hyperkeratosis [Recovered/Resolved]
  - Anal fistula [Unknown]
  - Off label use [Unknown]
  - Loss of personal independence in daily activities [Unknown]
  - Skin discolouration [Unknown]

NARRATIVE: CASE EVENT DATE: 20241016
